FAERS Safety Report 9017083 (Version 1)
Quarter: 2013Q1

REPORT INFORMATION
  Report Type: Spontaneous
  Country: US (occurrence: US)
  Receive Date: 20130117
  Receipt Date: 20130117
  Transmission Date: 20140127
  Serious: Yes (Death, Other)
  Sender: FDA-Public Use
  Company Number: PHEH2013US001275

PATIENT
  Age: 81 Year
  Sex: Male

DRUGS (2)
  1. GLEEVEC [Suspect]
     Dosage: 400 MG, EVERY DAY
     Route: 048
  2. IRON [Concomitant]

REACTIONS (2)
  - Death [Fatal]
  - Renal failure [Unknown]
